FAERS Safety Report 15930252 (Version 1)
Quarter: 2019Q1

REPORT INFORMATION
  Report Type: Spontaneous
  Country: US (occurrence: US)
  Receive Date: 20190207
  Receipt Date: 20190207
  Transmission Date: 20190417
  Serious: No
  Sender: FDA-Public Use
  Company Number: US-JNJFOC-20190115431

PATIENT
  Age: 55 Year
  Sex: Female

DRUGS (2)
  1. VISINE A [Suspect]
     Active Substance: NAPHAZOLINE HYDROCHLORIDE\PHENIRAMINE MALEATE
     Indication: EYE DISORDER
     Dosage: DOSE WAS REPORTED AS: 2 DROPS PER EYE
     Route: 047
     Dates: start: 20181222
  2. VISINE A [Suspect]
     Active Substance: NAPHAZOLINE HYDROCHLORIDE\PHENIRAMINE MALEATE
     Indication: SLEEP DISORDER THERAPY
     Dosage: DOSE WAS REPORTED AS: 2 DROPS PER EYE
     Route: 047
     Dates: start: 20181222

REACTIONS (3)
  - Expired product administered [Unknown]
  - Product label issue [Unknown]
  - Product use in unapproved indication [Unknown]

NARRATIVE: CASE EVENT DATE: 20181222
